FAERS Safety Report 9525202 (Version 1)
Quarter: 2013Q3

REPORT INFORMATION
  Report Type: Report from Study
  Country: KR (occurrence: KR)
  Receive Date: 20130916
  Receipt Date: 20130916
  Transmission Date: 20140515
  Serious: No
  Sender: FDA-Public Use
  Company Number: PHHY2013KR102008

PATIENT
  Age: 29 Year
  Sex: Female

DRUGS (3)
  1. AMN107 [Suspect]
     Indication: CHRONIC MYELOID LEUKAEMIA
     Dosage: 600 MG/DAY
     Route: 048
     Dates: start: 20121025, end: 20121102
  2. AMN107 [Suspect]
     Dosage: 300 MG/DAY
     Route: 048
     Dates: start: 20121103, end: 20130222
  3. AMN107 [Suspect]
     Dosage: 600 MG/DAY
     Route: 048
     Dates: start: 20130223

REACTIONS (2)
  - Upper respiratory tract infection [Recovered/Resolved]
  - Rash [Recovered/Resolved]
